FAERS Safety Report 10338470 (Version 1)
Quarter: 2014Q3

REPORT INFORMATION
  Report Type: Spontaneous
  Country: US (occurrence: None)
  Receive Date: 20140723
  Receipt Date: 20140723
  Transmission Date: 20150326
  Serious: Yes (Other)
  Sender: FDA-Public Use
  Company Number: None

PATIENT
  Sex: Female
  Weight: 43.64 kg

DRUGS (1)
  1. CLONIDINE HYDROCHLORIDE EXTENDED-RELEASE [Suspect]
     Active Substance: CLONIDINE HYDROCHLORIDE
     Indication: ATTENTION DEFICIT/HYPERACTIVITY DISORDER

REACTIONS (4)
  - Drug ineffective [None]
  - Product substitution issue [None]
  - Therapeutic response changed [None]
  - Abnormal behaviour [None]
